FAERS Safety Report 10090404 (Version 2)
Quarter: 2014Q2

REPORT INFORMATION
  Report Type: Spontaneous
  Country: SE (occurrence: SE)
  Receive Date: 20140421
  Receipt Date: 20140421
  Transmission Date: 20141212
  Serious: Yes (Life-Threatening)
  Sender: FDA-Public Use
  Company Number: SE-PFIZER INC-2014019522

PATIENT
  Age: 36 Year
  Sex: Female
  Weight: 63 kg

DRUGS (2)
  1. CHAMPIX [Suspect]
     Indication: SMOKING CESSATION THERAPY
     Dosage: 0.5 MG, 2X/DAY FOR 8 DAYS
     Dates: start: 20140103, end: 20140110
  2. CHAMPIX [Suspect]
     Dosage: 1 MG, 2X/DAY FOR 5 DAYS
     Dates: start: 20140111, end: 20140115

REACTIONS (10)
  - Depression [Recovered/Resolved]
  - Irritability [Recovered/Resolved]
  - Social avoidant behaviour [Recovered/Resolved]
  - Delusion [Recovered/Resolved]
  - Suicidal ideation [Recovered/Resolved]
  - Panic attack [Recovered/Resolved]
  - Aggression [Recovered/Resolved]
  - Chest discomfort [Recovered/Resolved]
  - Sleep disorder [Recovered/Resolved]
  - Hypotension [Recovered/Resolved]
